FAERS Safety Report 4536733-6 (Version None)
Quarter: 2004Q4

REPORT INFORMATION
  Report Type: 
  Country: None (occurrence: None)
  Receive Date: 20041223
  Receipt Date: 20041214
  Transmission Date: 20050328
  Serious: Yes (Death)
  Sender: FDA-Public Use
  Company Number: US-JNJFOC-20040807522

PATIENT
  Sex: Female

DRUGS (10)
  1. RISPERDAL [Suspect]
     Indication: MENTAL DISORDER
     Route: 049
     Dates: start: 19981123, end: 20040818
  2. COGENTIN [Concomitant]
  3. EFFEXOR [Concomitant]
     Indication: DEPRESSION
  4. BENADRYL [Concomitant]
  5. OPIATE PAIN MEDICATION [Concomitant]
  6. BC POWDER [Concomitant]
  7. BC POWDER [Concomitant]
  8. BC POWDER [Concomitant]
  9. LOTREL [Concomitant]
  10. LOTREL [Concomitant]

REACTIONS (1)
  - HEPATIC NEOPLASM MALIGNANT [None]
